FAERS Safety Report 15240021 (Version 9)
Quarter: 2019Q1

REPORT INFORMATION
  Report Type: Spontaneous
  Country: US (occurrence: US)
  Receive Date: 20180803
  Receipt Date: 20190110
  Transmission Date: 20190417
  Serious: Yes (Hospitalization)
  Sender: FDA-Public Use
  Company Number: US-ACTELION-A-NJ2018-176824

PATIENT
  Age: 76 Year
  Sex: Female

DRUGS (11)
  1. LYRICA [Concomitant]
     Active Substance: PREGABALIN
  2. POTASSIUM [Concomitant]
     Active Substance: POTASSIUM
     Dosage: 40 MG, UNK
  3. DILTIAZEM. [Suspect]
     Active Substance: DILTIAZEM
     Indication: PRODUCT USED FOR UNKNOWN INDICATION
     Dosage: 180 MG, QD
     Route: 065
  4. XARELTO [Concomitant]
     Active Substance: RIVAROXABAN
     Dosage: 5 MG, UNK
  5. TRACLEER [Suspect]
     Active Substance: BOSENTAN
     Indication: PULMONARY HYPERTENSION
     Dosage: 125 MG, BID
     Route: 048
  6. ISOSORBIDE. [Suspect]
     Active Substance: ISOSORBIDE
     Indication: PRODUCT USED FOR UNKNOWN INDICATION
     Dosage: 10 MG, BID
     Route: 065
  7. MULTAQ [Concomitant]
     Active Substance: DRONEDARONE
  8. TORSEMIDE. [Concomitant]
     Active Substance: TORSEMIDE
     Dosage: 100 MG, BID
  9. DIGOXIN. [Suspect]
     Active Substance: DIGOXIN
     Indication: PRODUCT USED FOR UNKNOWN INDICATION
     Dosage: 125 MG, QD
     Route: 065
  10. POTASSIUM [Concomitant]
     Active Substance: POTASSIUM
     Dosage: 20 MEQ, BID
     Dates: start: 20181016
  11. TORSEMIDE. [Concomitant]
     Active Substance: TORSEMIDE
     Dosage: 10 MG, QID
     Route: 048
     Dates: start: 20181016

REACTIONS (16)
  - Renal impairment [Unknown]
  - Oxygen saturation abnormal [Recovering/Resolving]
  - Left ventricular dysfunction [Recovering/Resolving]
  - Oedema [Recovered/Resolved]
  - Dyspnoea [Recovered/Resolved]
  - Cardiac failure congestive [Unknown]
  - Fluid overload [Recovered/Resolved]
  - Fluid retention [Unknown]
  - Acute left ventricular failure [Recovering/Resolving]
  - Oedema peripheral [Recovered/Resolved]
  - Hospitalisation [Unknown]
  - Constipation [Unknown]
  - Peripheral swelling [Unknown]
  - Weight fluctuation [Unknown]
  - Orthopnoea [Recovered/Resolved]
  - Urinary tract infection [Unknown]

NARRATIVE: CASE EVENT DATE: 20181120
